FAERS Safety Report 9097346 (Version 1)
Quarter: 2013Q1

REPORT INFORMATION
  Report Type: Spontaneous
  Country: NL (occurrence: NL)
  Receive Date: 20130212
  Receipt Date: 20130212
  Transmission Date: 20140127
  Serious: Yes (Other)
  Sender: FDA-Public Use
  Company Number: NL-TEVA-383768ISR

PATIENT
  Sex: Male

DRUGS (3)
  1. TRAMADOL [Suspect]
     Dosage: 150 MILLIGRAM DAILY;
     Route: 048
     Dates: start: 201301
  2. MARCOUMAR [Interacting]
  3. VITAMIN D [Concomitant]

REACTIONS (1)
  - International normalised ratio increased [Unknown]
